FAERS Safety Report 18775476 (Version 1)
Quarter: 2021Q1

REPORT INFORMATION
  Report Type: Spontaneous
  Country: CA (occurrence: CA)
  Receive Date: 20210122
  Receipt Date: 20210122
  Transmission Date: 20210419
  Serious: Yes (Other)
  Sender: FDA-Public Use
  Company Number: CA-PURDUE-USA-2020-0197161

PATIENT
  Sex: Male

DRUGS (1)
  1. OXYCONTIN [Suspect]
     Active Substance: OXYCODONE HYDROCHLORIDE
     Indication: PAIN IN EXTREMITY
     Dosage: 40 MG, TID
     Route: 048
     Dates: start: 2000, end: 20200301

REACTIONS (9)
  - Tremor [Unknown]
  - Renal failure [Unknown]
  - Drug dependence [Unknown]
  - Dyskinesia [Unknown]
  - Night sweats [Unknown]
  - General physical health deterioration [Unknown]
  - Anxiety [Unknown]
  - Depression [Unknown]
  - Vomiting [Unknown]
